FAERS Safety Report 16181463 (Version 7)
Quarter: 2019Q4

REPORT INFORMATION
  Report Type: Spontaneous
  Country: JP (occurrence: JP)
  Receive Date: 20190410
  Receipt Date: 20191004
  Transmission Date: 20200122
  Serious: Yes (Death, Hospitalization)
  Sender: FDA-Public Use
  Company Number: JP-ASTRAZENECA-2019SE31108

PATIENT
  Age: 28161 Day
  Sex: Female
  Weight: 46 kg

DRUGS (7)
  1. FLUMETHOLON [Concomitant]
     Active Substance: FLUOROMETHOLONE
     Dosage: THREE TIMES A DAY
     Route: 047
  2. ZESTRIL [Concomitant]
     Active Substance: LISINOPRIL
     Indication: HYPERTENSION
     Route: 048
  3. ADALAT [Concomitant]
     Active Substance: NIFEDIPINE
     Indication: HYPERTENSION
     Route: 048
  4. RHYTHMY [Concomitant]
     Active Substance: RILMAZAFONE HYDROCHLORIDE
     Route: 048
  5. DOXAZOSIN [Concomitant]
     Active Substance: DOXAZOSIN MESYLATE
     Route: 048
  6. BROTIZOLAM OD [Concomitant]
     Route: 048
  7. TAGRISSO [Suspect]
     Active Substance: OSIMERTINIB
     Indication: NON-SMALL CELL LUNG CANCER
     Route: 048
     Dates: start: 20180829, end: 20181016

REACTIONS (10)
  - Altered state of consciousness [Unknown]
  - Insomnia [Unknown]
  - Staphylococcal infection [Recovered/Resolved]
  - Atrial fibrillation [Recovered/Resolved]
  - Cardiac failure [Recovered/Resolved]
  - Sepsis [Recovered/Resolved]
  - Delirium [Unknown]
  - Interstitial lung disease [Fatal]
  - Infection [Unknown]
  - Carbon dioxide increased [Unknown]

NARRATIVE: CASE EVENT DATE: 20181016
